FAERS Safety Report 5798522-4 (Version None)
Quarter: 2008Q2

REPORT INFORMATION
  Report Type: 
  Country: None (occurrence: None)
  Receive Date: 20080630
  Receipt Date: 20080613
  Transmission Date: 20081010
  Serious: Yes (Other)
  Sender: FDA-Public Use
  Company Number: 8033826

PATIENT
  Age: 64 Year
  Sex: Female

DRUGS (6)
  1. LEVETIRACETAM [Suspect]
     Indication: EPILEPSY
     Dosage: 2000 MG/D
  2. VALPROIC ACID [Suspect]
     Indication: EPILEPSY
     Dosage: 2400 MG/D
  3. LEVODOPA [Concomitant]
  4. CAPTOPRILE [Concomitant]
  5. THIACIDE [Concomitant]
  6. RIVASTIGMINE TARTRATE [Concomitant]

REACTIONS (2)
  - DRUG INEFFECTIVE [None]
  - THROMBOCYTOPENIA [None]
